FAERS Safety Report 20573392 (Version 1)
Quarter: 2022Q1

REPORT INFORMATION
  Report Type: Spontaneous
  Country: US (occurrence: US)
  Receive Date: 20220309
  Receipt Date: 20220309
  Transmission Date: 20220424
  Serious: No
  Sender: FDA-Public Use
  Company Number: US-TEVA-2022-US-2008871

PATIENT
  Age: 81 Year
  Sex: Female

DRUGS (6)
  1. LEVALBUTEROL TARTRATE [Suspect]
     Active Substance: LEVALBUTEROL TARTRATE
     Dosage: INHALATION AEROSOL, 2 PUFFS DAILY AS NEEDED
     Route: 065
  2. ZIOPTAN [Suspect]
     Active Substance: TAFLUPROST
     Indication: Glaucoma
     Dosage: AT NIGHT
     Route: 065
     Dates: start: 202110, end: 20220101
  3. Aclivis Pharmaceuticals Xopenex [Concomitant]
  4. AstraZeneca Pulmicort [Concomitant]
  5. Oceanside Pharmaceuticals diltiazem [Concomitant]
  6. Zydus Pharmaceutical Losartan [Concomitant]

REACTIONS (3)
  - Dyspnoea [Recovering/Resolving]
  - Fatigue [Recovering/Resolving]
  - COVID-19 [Unknown]

NARRATIVE: CASE EVENT DATE: 20211201
